FAERS Safety Report 6338210-9 (Version None)
Quarter: 2009Q3

REPORT INFORMATION
  Report Type: 
  Country: None (occurrence: None)
  Receive Date: 20090902
  Receipt Date: 20090820
  Transmission Date: 20100115
  Serious: Yes (Death, Other)
  Sender: FDA-Public Use
  Company Number: US-BAYER-200930937NA

PATIENT
  Age: 57 Year
  Sex: Male

DRUGS (16)
  1. MAGNEVIST [Suspect]
     Indication: NUCLEAR MAGNETIC RESONANCE IMAGING BRAIN
     Dates: start: 20020424, end: 20020424
  2. MAGNEVIST [Suspect]
     Dates: start: 20040122, end: 20040122
  3. MAGNEVIST [Suspect]
     Dates: start: 20050413, end: 20050413
  4. MAGNEVIST [Suspect]
     Dates: start: 20060627, end: 20060627
  5. MAGNEVIST [Suspect]
     Dates: start: 20050622, end: 20050622
  6. MAGNEVIST [Suspect]
     Dates: start: 20060221, end: 20060221
  7. ARANESP [Concomitant]
  8. WARFARIN SODIUM [Concomitant]
  9. FERROUS SULFATE TAB [Concomitant]
  10. MOMETASONE FUROATE [Concomitant]
  11. SERTRALINE HCL [Concomitant]
  12. PROPOXYPHENE HCL CAP [Concomitant]
  13. SEVELAMER [Concomitant]
  14. CIPRO [Concomitant]
     Indication: PSEUDOMONAS INFECTION
     Dates: start: 20071001, end: 20071101
  15. REGULAR INSULIN [Concomitant]
     Indication: DIABETES MELLITUS
     Dosage: APPROX. 70 UNITS PER NIGHT INTRAPERITONEALLY
     Route: 033
  16. HYDRALAZINE HCL [Concomitant]

REACTIONS (19)
  - DRY SKIN [None]
  - ERYTHEMA [None]
  - GAIT DISTURBANCE [None]
  - HYPOKINESIA [None]
  - JOINT RANGE OF MOTION DECREASED [None]
  - MUSCLE CONTRACTURE [None]
  - MUSCLE FIBROSIS [None]
  - MYOCARDIAL FIBROSIS [None]
  - NEPHROCALCINOSIS [None]
  - NEPHROGENIC SYSTEMIC FIBROSIS [None]
  - PRURITUS [None]
  - PULMONARY FIBROSIS [None]
  - SKIN DISCOLOURATION [None]
  - SKIN EXFOLIATION [None]
  - SKIN FIBROSIS [None]
  - SKIN HYPERTROPHY [None]
  - SKIN INDURATION [None]
  - SKIN LESION [None]
  - SKIN PLAQUE [None]
